FAERS Safety Report 20664119 (Version 1)
Quarter: 2022Q2

REPORT INFORMATION
  Report Type: Report from Study
  Country: US (occurrence: US)
  Receive Date: 20220401
  Receipt Date: 20220401
  Transmission Date: 20220721
  Serious: Yes (Death)
  Sender: FDA-Public Use
  Company Number: US-CHIESI-2022CHF01478

PATIENT
  Age: 67 Year
  Sex: Male
  Weight: 98.1 kg

DRUGS (4)
  1. KENGREAL [Suspect]
     Active Substance: CANGRELOR
     Indication: Product used for unknown indication
     Dosage: 30 MICROGRAM/KILOGRAM
     Route: 040
     Dates: start: 20211125, end: 20211126
  2. KENGREAL [Suspect]
     Active Substance: CANGRELOR
     Dosage: UNK
     Route: 042
     Dates: start: 20211125, end: 20211126
  3. ASPIRIN [Concomitant]
     Active Substance: ASPIRIN
     Indication: Product used for unknown indication
     Dosage: UNK
  4. ATORVASTATIN CALCIUM [Concomitant]
     Active Substance: ATORVASTATIN CALCIUM
     Indication: Product used for unknown indication
     Dosage: UNK

REACTIONS (6)
  - Cardiogenic shock [Fatal]
  - Cardiac failure [Fatal]
  - Incorrect product administration duration [Fatal]
  - Off label use [Recovered/Resolved]
  - Off label use [Recovered/Resolved]
  - Off label use [Recovered/Resolved]

NARRATIVE: CASE EVENT DATE: 20211124
